FAERS Safety Report 18799506 (Version 1)
Quarter: 2021Q1

REPORT INFORMATION
  Report Type: Other
  Country: CA (occurrence: CA)
  Receive Date: 20210128
  Receipt Date: 20210128
  Transmission Date: 20210419
  Serious: Yes (Disabling)
  Sender: FDA-Public Use
  Company Number: CA-APOTEX-2021AP001746

PATIENT
  Age: 75 Year
  Sex: Male
  Weight: 78 kg

DRUGS (7)
  1. APO?ROSUVASTATIN [Suspect]
     Active Substance: ROSUVASTATIN
     Indication: LOW DENSITY LIPOPROTEIN INCREASED
     Dosage: 20 MILLIGRAM, QD
     Route: 048
  2. CALCIUM [Concomitant]
     Active Substance: CALCIUM
     Indication: PRODUCT USED FOR UNKNOWN INDICATION
     Dosage: UNK
     Route: 065
  3. APO?ROSUVASTATIN [Suspect]
     Active Substance: ROSUVASTATIN
     Indication: HIGH DENSITY LIPOPROTEIN DECREASED
  4. VITAMIN D NOS [Concomitant]
     Active Substance: VITAMIN D NOS
     Indication: PRODUCT USED FOR UNKNOWN INDICATION
     Dosage: UNK
     Route: 065
  5. ELIQUIS [Concomitant]
     Active Substance: APIXABAN
     Indication: PRODUCT USED FOR UNKNOWN INDICATION
     Dosage: UNK
     Route: 065
  6. SYNTHROID [Concomitant]
     Active Substance: LEVOTHYROXINE SODIUM
     Indication: PRODUCT USED FOR UNKNOWN INDICATION
     Dosage: UNK
     Route: 065
  7. BISOPROLOL FUMARATE. [Concomitant]
     Active Substance: BISOPROLOL FUMARATE
     Indication: PRODUCT USED FOR UNKNOWN INDICATION
     Dosage: UNK
     Route: 065

REACTIONS (8)
  - Muscular weakness [Recovered/Resolved]
  - Decreased activity [Recovered/Resolved]
  - Drug intolerance [Recovered/Resolved]
  - Mobility decreased [Recovered/Resolved]
  - Glycosylated haemoglobin increased [Recovered/Resolved]
  - Myalgia [Recovered/Resolved]
  - Blood creatinine abnormal [Recovered/Resolved]
  - Pain in extremity [Recovered/Resolved]
